FAERS Safety Report 7051749-6 (Version None)
Quarter: 2010Q4

REPORT INFORMATION
  Report Type: 
  Country: None (occurrence: None)
  Receive Date: 20101019
  Receipt Date: 20101006
  Transmission Date: 20110411
  Serious: Yes (Hospitalization)
  Sender: FDA-Public Use
  Company Number: PHHY2010JP67027

PATIENT
  Age: 82 Year
  Sex: Female

DRUGS (1)
  1. VOLTAREN [Suspect]
     Indication: PAIN IN EXTREMITY
     Route: 048

REACTIONS (2)
  - COLON CANCER [None]
  - GASTROINTESTINAL ULCER [None]
